FAERS Safety Report 7268073-9 (Version None)
Quarter: 2011Q1

REPORT INFORMATION
  Report Type: 
  Country: None (occurrence: None)
  Receive Date: 20110201
  Receipt Date: 20110125
  Transmission Date: 20110831
  Serious: Yes (Other)
  Sender: FDA-Public Use
  Company Number: DE-PFIZER INC-2011017097

PATIENT
  Sex: Female

DRUGS (1)
  1. ALOND [Suspect]
     Dosage: UNK
     Dates: start: 20110108

REACTIONS (1)
  - HAEMATOCHEZIA [None]
